FAERS Safety Report 18643288 (Version 4)
Quarter: 2021Q1

REPORT INFORMATION
  Report Type: Spontaneous
  Country: CA (occurrence: CA)
  Receive Date: 20201221
  Receipt Date: 20210219
  Transmission Date: 20210419
  Serious: Yes (Other)
  Sender: FDA-Public Use
  Company Number: CA-PFIZER INC-2020498358

PATIENT
  Age: 52 Year
  Sex: Female

DRUGS (9)
  1. PREDNISONE. [Concomitant]
     Active Substance: PREDNISONE
     Dosage: 5 MG, DAILY (TAPERING)
     Route: 048
     Dates: start: 202011
  2. CITALOPRAM [Concomitant]
     Active Substance: CITALOPRAM HYDROBROMIDE
     Dosage: UNK
  3. FLEXERIL [Concomitant]
     Active Substance: CYCLOBENZAPRINE HYDROCHLORIDE
     Dosage: 10 MG, DAILY (AT BEDTIME)
     Route: 048
  4. XELJANZ XR [Suspect]
     Active Substance: TOFACITINIB CITRATE
     Indication: RHEUMATOID ARTHRITIS
     Dosage: 11 MG, DAILY
     Route: 048
     Dates: start: 2020, end: 20210128
  5. FOLIC ACID. [Concomitant]
     Active Substance: FOLIC ACID
     Dosage: 30 MG, WEEKLY (5 MG 6DAYS/WEEK)
     Route: 048
  6. METHOTREXATE. [Concomitant]
     Active Substance: METHOTREXATE
     Dosage: 10 MG, WEEKLY
     Route: 048
     Dates: end: 202011
  7. CORTISONE [Concomitant]
     Active Substance: CORTISONE
     Dosage: UNK
     Dates: end: 202012
  8. METFORMIN [Concomitant]
     Active Substance: METFORMIN HYDROCHLORIDE
     Dosage: UNK
  9. METHOTREXATE. [Concomitant]
     Active Substance: METHOTREXATE
     Dosage: 20 MG, WEEKLY
     Route: 048
     Dates: start: 202011

REACTIONS (12)
  - Weight increased [Recovering/Resolving]
  - Condition aggravated [Unknown]
  - Abdominal pain upper [Unknown]
  - Anxiety [Unknown]
  - Therapeutic product effect decreased [Unknown]
  - Headache [Recovered/Resolved]
  - Drug intolerance [Unknown]
  - Epistaxis [Recovered/Resolved]
  - Blood pressure abnormal [Unknown]
  - Insomnia [Unknown]
  - Fatigue [Unknown]
  - Rash [Recovering/Resolving]
